FAERS Safety Report 21739128 (Version 1)
Quarter: 2022Q4

REPORT INFORMATION
  Report Type: Spontaneous
  Country: US (occurrence: None)
  Receive Date: 20221215
  Receipt Date: 20221215
  Transmission Date: 20230113
  Serious: No
  Sender: FDA-Public Use
  Company Number: None

PATIENT
  Age: 86 Year
  Sex: Male

DRUGS (1)
  1. OLANZAPINE [Suspect]
     Active Substance: OLANZAPINE
     Indication: Hypertension
     Dosage: FREQUENCY : ONCE;?
     Route: 042
     Dates: start: 20220901, end: 20220901

REACTIONS (4)
  - Asthenia [None]
  - Hypophagia [None]
  - Blood pressure increased [None]
  - Treatment noncompliance [None]

NARRATIVE: CASE EVENT DATE: 20220901
